FAERS Safety Report 20657698 (Version 2)
Quarter: 2022Q2

REPORT INFORMATION
  Report Type: Spontaneous
  Country: FR (occurrence: FR)
  Receive Date: 20220331
  Receipt Date: 20220526
  Transmission Date: 20220720
  Serious: Yes (Other)
  Sender: FDA-Public Use
  Company Number: FR-CELGENE-FRA-20220302730

PATIENT
  Age: 69 Year
  Sex: Female

DRUGS (6)
  1. LENALIDOMIDE [Suspect]
     Active Substance: LENALIDOMIDE
     Indication: Diffuse large B-cell lymphoma refractory
     Dosage: CONTINUED FOR 4 WEEKS, 21/28 DAYS
     Route: 065
  2. LENALIDOMIDE [Suspect]
     Active Substance: LENALIDOMIDE
     Dosage: FREQUENCY TEXT: NOT PROVIDED?10 MILLIGRAM
     Route: 065
  3. LENALIDOMIDE [Suspect]
     Active Substance: LENALIDOMIDE
     Dosage: CONTINUED FOR 4 WEEKS, 21/28 DAYS
     Route: 065
  4. LENALIDOMIDE [Suspect]
     Active Substance: LENALIDOMIDE
     Dosage: FREQUENCY TEXT: NOT PROVIDED?10 MILLIGRAM
     Route: 065
  5. TAFASITAMAB-CXIX [Suspect]
     Active Substance: TAFASITAMAB-CXIX
     Indication: Diffuse large B-cell lymphoma refractory
     Dosage: FREQUENCY TEXT: NOT PROVIDED?12 MILLIGRAM/KILOGRAM
     Route: 065
  6. TAFASITAMAB-CXIX [Suspect]
     Active Substance: TAFASITAMAB-CXIX

REACTIONS (4)
  - Neutropenia [Unknown]
  - Diffuse large B-cell lymphoma refractory [Unknown]
  - Febrile bone marrow aplasia [Unknown]
  - Intentional product use issue [Unknown]
